FAERS Safety Report 8782180 (Version 2)
Quarter: 2012Q4

REPORT INFORMATION
  Report Type: 
  Country: DE (occurrence: DE)
  Receive Date: 20120913
  Receipt Date: 20120925
  Transmission Date: 20130627
  Serious: Yes (Hospitalization)
  Sender: FDA-Public Use
  Company Number: DE-ELI_LILLY_AND_COMPANY-DE201208009452

PATIENT
  Sex: Male

DRUGS (13)
  1. BYETTA [Suspect]
     Indication: DIABETES MELLITUS
     Dosage: UNK, unknown
     Route: 058
     Dates: start: 201207
  2. BYETTA [Suspect]
     Dosage: 10 ug, unknown
     Route: 058
     Dates: start: 201208, end: 201209
  3. LANTUS [Concomitant]
     Dosage: 10 u, unknown
     Dates: start: 20120830
  4. IRENAT [Concomitant]
  5. TORASEMID [Concomitant]
  6. LISINOPRIL [Concomitant]
     Dosage: 20 mg, UNK
  7. ASS [Concomitant]
  8. BISOPROLOL [Concomitant]
  9. SPIROBETA [Concomitant]
  10. XIPAMID [Concomitant]
  11. ATORVASTATIN [Concomitant]
  12. PANTOPRAZOL [Concomitant]
  13. PROTAPHANE [Concomitant]

REACTIONS (3)
  - Skin ulcer [Not Recovered/Not Resolved]
  - Thyroid function test abnormal [Not Recovered/Not Resolved]
  - Blood glucose increased [Recovered/Resolved]
